FAERS Safety Report 4668995-9 (Version None)
Quarter: 2005Q2

REPORT INFORMATION
  Report Type: 
  Country: None (occurrence: None)
  Receive Date: 20050523
  Receipt Date: 20050513
  Transmission Date: 20051028
  Serious: Yes (Hospitalization, Other)
  Sender: FDA-Public Use
  Company Number: RU-GLAXOSMITHKLINE-B0381756A

PATIENT
  Age: 25 Year
  Sex: Female
  Weight: 65 kg

DRUGS (2)
  1. AVANDIA [Suspect]
     Indication: INSULIN RESISTANCE SYNDROME
     Dosage: 8MG PER DAY
     Route: 048
  2. NO CONCURRENT MEDICATION [Concomitant]

REACTIONS (4)
  - AMNESIA [None]
  - CONVULSION [None]
  - NYSTAGMUS [None]
  - URINARY INCONTINENCE [None]
